FAERS Safety Report 11800239 (Version 1)
Quarter: 2015Q4

REPORT INFORMATION
  Report Type: Report from Study
  Country: US (occurrence: US)
  Receive Date: 20151203
  Receipt Date: 20151203
  Transmission Date: 20160305
  Serious: Yes (Hospitalization, Other)
  Sender: FDA-Public Use
  Company Number: US-AMGEN-USASL2015127786

PATIENT
  Age: 61 Year
  Sex: Female

DRUGS (2)
  1. INSULIN [Suspect]
     Active Substance: INSULIN NOS
     Indication: PRODUCT USED FOR UNKNOWN INDICATION
     Dosage: UNK
     Route: 065
  2. ENBREL [Suspect]
     Active Substance: ETANERCEPT
     Indication: RHEUMATOID ARTHRITIS
     Dosage: 50 MG, QWK
     Route: 065
     Dates: start: 2005

REACTIONS (4)
  - Hypoglycaemic coma [Unknown]
  - Bronchitis [Unknown]
  - Pulmonary hypertension [Unknown]
  - Drug administration error [Unknown]

NARRATIVE: CASE EVENT DATE: 201510
